FAERS Safety Report 9733014 (Version 1)
Quarter: 2013Q4

REPORT INFORMATION
  Report Type: Spontaneous
  Country: US (occurrence: US)
  Receive Date: 20131204
  Receipt Date: 20131204
  Transmission Date: 20140711
  Serious: No
  Sender: FDA-Public Use
  Company Number: US-GILEAD-2009-0021849

PATIENT
  Sex: Female
  Weight: 92.99 kg

DRUGS (16)
  1. LETAIRIS [Suspect]
     Indication: PULMONARY ARTERIAL HYPERTENSION
     Route: 048
     Dates: start: 20081212
  2. COUMADIN [Concomitant]
  3. LASIX [Concomitant]
  4. REVATIO [Concomitant]
  5. METOPROLOL [Concomitant]
  6. CATAPRES [Concomitant]
  7. OXYGEN [Concomitant]
  8. VENTAVIS [Concomitant]
  9. PERCOCET [Concomitant]
  10. PROZAC [Concomitant]
  11. VICODIN [Concomitant]
  12. ATIVAN [Concomitant]
  13. XANAX [Concomitant]
  14. PAXIL [Concomitant]
  15. K-DUR [Concomitant]
  16. DEPO [Concomitant]

REACTIONS (1)
  - Pain [Unknown]
